FAERS Safety Report 23939290 (Version 1)
Quarter: 2024Q2

REPORT INFORMATION
  Report Type: Report from Study
  Country: MX (occurrence: MX)
  Receive Date: 20240605
  Receipt Date: 20240605
  Transmission Date: 20240716
  Serious: Yes (Other)
  Sender: FDA-Public Use
  Company Number: MX-ABBOTT-2024A-1382349

PATIENT
  Age: 83 Year
  Sex: Male

DRUGS (7)
  1. EPIVAL [Suspect]
     Active Substance: DIVALPROEX SODIUM
     Indication: Senile dementia
     Dosage: 1 TABLET IN THE MORNING., 250 MG
     Route: 048
     Dates: start: 20240309
  2. LEVOTHYROXINE [Concomitant]
     Active Substance: LEVOTHYROXINE\LEVOTHYROXINE SODIUM
     Indication: Thyroid disorder
     Dosage: 1 TABLET DAILY IN THE MORNING.
     Route: 048
  3. PRIMIDONE [Concomitant]
     Active Substance: PRIMIDONE
     Indication: Depression
     Dosage: A HALF TABLET AT NIGHT.
     Route: 048
  4. APIXABAN [Concomitant]
     Active Substance: APIXABAN
     Indication: Anticoagulant therapy
     Dosage: 1 TABLET IN THE MORNING AND 1 TABLET AT NIGHT.
     Route: 048
  5. MEMANTINE HYDROCHLORIDE [Concomitant]
     Active Substance: MEMANTINE HYDROCHLORIDE
     Indication: Affective disorder
     Dosage: A HALF TABLET IN THE MORNING AND A HALF TABLET AT NIGHT.
     Route: 048
  6. RISPERIDONE [Concomitant]
     Active Substance: RISPERIDONE
     Indication: Product used for unknown indication
     Dosage: A QUARTER OF TABLET AT NIGHT.
     Route: 048
  7. EPIVAL [Suspect]
     Active Substance: DIVALPROEX SODIUM
     Indication: Anxiety
     Dosage: 1 TABLET AT NIGHT.
     Route: 048
     Dates: start: 20240309

REACTIONS (2)
  - Parkinson^s disease [Unknown]
  - Off label use [Unknown]

NARRATIVE: CASE EVENT DATE: 20240309
